FAERS Safety Report 7621030-2 (Version None)
Quarter: 2011Q3

REPORT INFORMATION
  Report Type: 
  Country: None (occurrence: None)
  Receive Date: 20110719
  Receipt Date: 20110329
  Transmission Date: 20111222
  Serious: No
  Sender: FDA-Public Use
  Company Number: US-KINGPHARMUSA00001-K201100371

PATIENT
  Sex: Female

DRUGS (1)
  1. LEVOXYL [Suspect]
     Dosage: UNK
     Route: 048

REACTIONS (4)
  - SKIN FISSURES [None]
  - ERYTHEMA [None]
  - PAIN IN EXTREMITY [None]
  - FEELING HOT [None]
